FAERS Safety Report 5651251-X (Version None)
Quarter: 2008Q1

REPORT INFORMATION
  Report Type: 
  Country: None (occurrence: None)
  Receive Date: 20080131
  Receipt Date: 20071011
  Transmission Date: 20080703
  Serious: No
  Sender: FDA-Public Use
  Company Number: US200710003279

PATIENT
  Age: 66 Year
  Sex: Female
  Weight: 84.8 kg

DRUGS (3)
  1. BYETTA [Suspect]
     Indication: TYPE 2 DIABETES MELLITUS
     Dosage: 5 UG, 2/D, SUBCUTANEOUS ; 10 UG, 2/D, SUBCUTANEOUS
     Route: 058
     Dates: start: 20070601, end: 20070801
  2. BYETTA [Suspect]
     Indication: TYPE 2 DIABETES MELLITUS
     Dosage: 5 UG, 2/D, SUBCUTANEOUS ; 10 UG, 2/D, SUBCUTANEOUS
     Route: 058
     Dates: start: 20070823
  3. GLYBURIDE [Concomitant]

REACTIONS (6)
  - BLOOD GLUCOSE DECREASED [None]
  - BLOOD GLUCOSE INCREASED [None]
  - HUNGER [None]
  - TREMOR [None]
  - VISION BLURRED [None]
  - WEIGHT DECREASED [None]
